FAERS Safety Report 5646110-2 (Version None)
Quarter: 2008Q1

REPORT INFORMATION
  Report Type: 
  Country: None (occurrence: None)
  Receive Date: 20080131
  Receipt Date: 20071029
  Transmission Date: 20080703
  Serious: Yes (Other)
  Sender: FDA-Public Use
  Company Number: 163-21880-07110027

PATIENT
  Age: 70 Year
  Sex: Female

DRUGS (1)
  1. REVLIMID [Suspect]
     Indication: MULTIPLE MYELOMA
     Dosage: 20 MG, DAILY, ORAL
     Route: 048
     Dates: start: 20070504, end: 20070101

REACTIONS (3)
  - MALAISE [None]
  - PNEUMONIA [None]
  - THROMBOSIS [None]
